FAERS Safety Report 9679128 (Version 1)
Quarter: 2013Q4

REPORT INFORMATION
  Report Type: Spontaneous
  Country: US (occurrence: US)
  Receive Date: 20131108
  Receipt Date: 20131108
  Transmission Date: 20140711
  Serious: Yes (Other)
  Sender: FDA-Public Use
  Company Number: CHPA2013US016868

PATIENT
  Sex: Female

DRUGS (2)
  1. VOLTAREN GEL [Suspect]
     Indication: PAIN
     Dosage: VERY LITTLE, PRN
     Route: 061
  2. VOLTAREN GEL [Suspect]
     Indication: OFF LABEL USE

REACTIONS (3)
  - Blood cholesterol abnormal [Not Recovered/Not Resolved]
  - Therapeutic response unexpected [Unknown]
  - Wrong technique in drug usage process [Unknown]
